FAERS Safety Report 12624462 (Version 3)
Quarter: 2016Q3

REPORT INFORMATION
  Report Type: Spontaneous
  Country: JP (occurrence: JP)
  Receive Date: 20160805
  Receipt Date: 20160829
  Transmission Date: 20161109
  Serious: Yes (Other)
  Sender: FDA-Public Use
  Company Number: JP-ROCHE-1731241

PATIENT
  Age: 63 Year
  Sex: Female
  Weight: 63 kg

DRUGS (9)
  1. CLARITHROMYCIN. [Concomitant]
     Active Substance: CLARITHROMYCIN
     Indication: ACUTE SINUSITIS
     Route: 048
     Dates: start: 20160215, end: 20160221
  2. NEUROTROPIN (JAPAN) [Concomitant]
     Dosage: DOSAGE IS UNCERTAIN.
     Route: 065
  3. OLOPATADINE HYDROCHLORIDE. [Concomitant]
     Active Substance: OLOPATADINE HYDROCHLORIDE
     Indication: RHINITIS ALLERGIC
     Route: 048
     Dates: start: 20150309
  4. ARTZ [Concomitant]
     Active Substance: HYALURONATE SODIUM
     Dosage: DOSAGE IS UNCERTAIN.
     Route: 065
  5. ALLERMIST [Concomitant]
     Active Substance: FLUTICASONE FUROATE
     Indication: RHINITIS ALLERGIC
     Route: 045
     Dates: start: 20150619
  6. BONVIVA [Suspect]
     Active Substance: IBANDRONATE SODIUM
     Indication: OSTEOPOROSIS
     Route: 042
     Dates: start: 20160215, end: 20160215
  7. XYLOCAINE [Concomitant]
     Active Substance: LIDOCAINE HYDROCHLORIDE
     Dosage: DOSAGE IS UNCERTAIN.
     Route: 065
  8. CLARITHROMYCIN. [Concomitant]
     Active Substance: CLARITHROMYCIN
     Route: 065
     Dates: start: 20150309, end: 20150322
  9. MUCODYNE [Concomitant]
     Active Substance: CARBOCYSTEINE
     Indication: ACUTE SINUSITIS
     Route: 048
     Dates: start: 20160215, end: 20160221

REACTIONS (6)
  - Cellulitis [Recovering/Resolving]
  - Musculoskeletal discomfort [Unknown]
  - Myalgia [Recovered/Resolved]
  - Back pain [Unknown]
  - Phlebitis [Recovering/Resolving]
  - Pain in extremity [Unknown]

NARRATIVE: CASE EVENT DATE: 20160216
